FAERS Safety Report 9138339 (Version 3)
Quarter: 2013Q2

REPORT INFORMATION
  Report Type: Spontaneous
  Country: US (occurrence: US)
  Receive Date: 20130305
  Receipt Date: 20130618
  Transmission Date: 20140414
  Serious: Yes (Hospitalization)
  Sender: FDA-Public Use
  Company Number: US-BIOGENIDEC-2013BI020239

PATIENT
  Age: 53 Year
  Sex: Female

DRUGS (8)
  1. TYSABRI [Suspect]
     Indication: MULTIPLE SCLEROSIS
     Route: 042
     Dates: start: 20100815
  2. ATENOLOL [Concomitant]
     Route: 048
  3. LAMICTAL [Concomitant]
     Route: 048
  4. LEVOTHYROXINE [Concomitant]
     Route: 048
  5. VESICARE [Concomitant]
     Route: 048
  6. ZYRTEC [Concomitant]
     Route: 048
  7. NAPROXEN [Concomitant]
     Indication: PAIN
     Route: 048
  8. TRAMADOL [Concomitant]
     Indication: PAIN
     Route: 048

REACTIONS (5)
  - Autoimmune haemolytic anaemia [Recovered/Resolved]
  - Fatigue [Unknown]
  - Weight increased [Unknown]
  - Hypoxia [Unknown]
  - Constipation [Unknown]
